FAERS Safety Report 22359253 (Version 1)
Quarter: 2023Q2

REPORT INFORMATION
  Report Type: Spontaneous
  Country: US (occurrence: US)
  Receive Date: 20230524
  Receipt Date: 20230524
  Transmission Date: 20230721
  Serious: No
  Sender: FDA-Public Use
  Company Number: US-VANDA PHARMACEUTICALS, INC-2022ILOUS001893

PATIENT
  Age: 57 Year
  Sex: Male

DRUGS (2)
  1. FANAPT [Suspect]
     Active Substance: ILOPERIDONE
     Indication: Schizophrenia
     Dosage: TITRATION DOSE
     Dates: start: 20220805, end: 20220808
  2. FANAPT [Suspect]
     Active Substance: ILOPERIDONE
     Dosage: 6 MILLIGRAM, BID
     Route: 048
     Dates: start: 20220809

REACTIONS (3)
  - Nasal congestion [Not Recovered/Not Resolved]
  - Lethargy [Not Recovered/Not Resolved]
  - Irritability [Not Recovered/Not Resolved]
